FAERS Safety Report 25602826 (Version 3)
Quarter: 2025Q3

REPORT INFORMATION
  Report Type: Spontaneous
  Country: EU (occurrence: EU)
  Receive Date: 20250724
  Receipt Date: 20250919
  Transmission Date: 20251020
  Serious: Yes (Other)
  Sender: PFIZER
  Company Number: EU-PFIZER INC-PV202500088707

PATIENT
  Age: 15 Year
  Sex: Female
  Weight: 50 kg

DRUGS (1)
  1. NGENLA [Suspect]
     Active Substance: SOMATROGON-GHLA
     Indication: Dwarfism
     Dosage: 33 MG, WEEKLY
     Route: 058
     Dates: start: 202502

REACTIONS (1)
  - Clavicle fracture [Recovered/Resolved]

NARRATIVE: CASE EVENT DATE: 20250716
